FAERS Safety Report 14107282 (Version 1)
Quarter: 2017Q4

REPORT INFORMATION
  Report Type: Spontaneous
  Country: DE (occurrence: DE)
  Receive Date: 20171019
  Receipt Date: 20171019
  Transmission Date: 20180321
  Serious: Yes (Other)
  Sender: FDA-Public Use
  Company Number: DE-FRESENIUS KABI-FK201708756

PATIENT
  Age: 54 Year
  Sex: Female

DRUGS (1)
  1. AMIODARONE HCL (MANUFACTURER UNKNOWN) [Suspect]
     Active Substance: AMIODARONE HYDROCHLORIDE
     Indication: HAEMODYNAMIC INSTABILITY
     Route: 065

REACTIONS (2)
  - Torsade de pointes [Unknown]
  - Conduction disorder [Unknown]
